FAERS Safety Report 18151295 (Version 1)
Quarter: 2020Q3

REPORT INFORMATION
  Report Type: Report from Study
  Country: None (occurrence: US)
  Receive Date: 20200814
  Receipt Date: 20200814
  Transmission Date: 20201103
  Serious: Yes (Hospitalization)
  Sender: FDA-Public Use
  Company Number: US-ABBVIE-20K-163-3524563-00

PATIENT
  Sex: Female

DRUGS (3)
  1. VENCLEXTA [Suspect]
     Active Substance: VENETOCLAX
     Indication: ACUTE LYMPHOCYTIC LEUKAEMIA
  2. VENCLEXTA [Suspect]
     Active Substance: VENETOCLAX
     Indication: MYELODYSPLASTIC SYNDROME
  3. VENCLEXTA [Suspect]
     Active Substance: VENETOCLAX
     Indication: 5Q MINUS SYNDROME
     Dosage: TAKE 3 TABLET(S) BY MOUTH DAILY WITH FOOD AND WATER
     Route: 048

REACTIONS (3)
  - Cardiac disorder [Unknown]
  - Off label use [Unknown]
  - Pneumonia [Unknown]
